FAERS Safety Report 9147393 (Version 2)
Quarter: 2013Q3

REPORT INFORMATION
  Report Type: Spontaneous
  Country: FR (occurrence: FR)
  Receive Date: 20130307
  Receipt Date: 20130726
  Transmission Date: 20140515
  Serious: Yes (Life-Threatening, Hospitalization)
  Sender: FDA-Public Use
  Company Number: FR-GLAXOSMITHKLINE-B0871053A

PATIENT
  Age: 89 Year
  Sex: Female

DRUGS (10)
  1. ARIXTRA [Suspect]
     Indication: THROMBOSIS PROPHYLAXIS
     Dosage: 2.5MG PER DAY
     Route: 058
     Dates: start: 20130123, end: 20130129
  2. PARACETAMOL [Concomitant]
     Route: 065
  3. VITAMIN C [Concomitant]
     Route: 065
  4. CHOLECALCIFEROL [Concomitant]
     Route: 065
  5. TRANSIPEG [Concomitant]
     Route: 065
  6. MESTINON [Concomitant]
     Route: 065
  7. HYDROSOL POLYVITAMINE BON [Concomitant]
  8. CALCIDOSE VITAMIN D [Concomitant]
     Route: 065
  9. DIETARY SUPPLEMENT [Concomitant]
  10. FRESUBIN [Concomitant]

REACTIONS (2)
  - Subcutaneous haematoma [Recovered/Resolved with Sequelae]
  - Anaemia [Recovered/Resolved with Sequelae]
